FAERS Safety Report 17047227 (Version 1)
Quarter: 2019Q4

REPORT INFORMATION
  Report Type: Spontaneous
  Country: US (occurrence: US)
  Receive Date: 20191118
  Receipt Date: 20191118
  Transmission Date: 20200122
  Serious: Yes (Disabling)
  Sender: FDA-Public Use
  Company Number: None

PATIENT
  Age: 36 Year
  Sex: Female
  Weight: 62.14 kg

DRUGS (7)
  1. SERTRALINE [Concomitant]
     Active Substance: SERTRALINE HYDROCHLORIDE
  2. IBUPROFEN. [Concomitant]
     Active Substance: IBUPROFEN
  3. TOPIRAMATE. [Concomitant]
     Active Substance: TOPIRAMATE
  4. EXCEDRIN MIGRAINE [Concomitant]
     Active Substance: ACETAMINOPHEN\ASPIRIN\CAFFEINE
  5. TYLENOL [Concomitant]
     Active Substance: ACETAMINOPHEN
  6. PANTOPRAZOLE [Concomitant]
     Active Substance: PANTOPRAZOLE
  7. MIRENA [Suspect]
     Active Substance: LEVONORGESTREL

REACTIONS (9)
  - Weight increased [None]
  - Tension headache [None]
  - Ovarian cyst [None]
  - Condition aggravated [None]
  - Migraine [None]
  - Decreased appetite [None]
  - Anxiety [None]
  - Irritable bowel syndrome [None]
  - Food intolerance [None]
